FAERS Safety Report 7633659-6 (Version None)
Quarter: 2011Q3

REPORT INFORMATION
  Report Type: 
  Country: None (occurrence: None)
  Receive Date: 20110725
  Receipt Date: 20110715
  Transmission Date: 20111222
  Serious: Yes (Death)
  Sender: FDA-Public Use
  Company Number: JP-GLAXOSMITHKLINE-B0684084A

PATIENT
  Sex: Male
  Weight: 74 kg

DRUGS (18)
  1. DECADRON [Concomitant]
     Indication: STEM CELL TRANSPLANT
     Dosage: 40MG PER DAY
     Dates: start: 20040509, end: 20040512
  2. FAMOTIDINE [Concomitant]
     Dosage: 40MG PER DAY
     Route: 048
     Dates: end: 20040518
  3. MUCOSTA [Concomitant]
     Dosage: 300MG PER DAY
     Route: 048
     Dates: end: 20040518
  4. URSO 250 [Concomitant]
     Dosage: 600MG PER DAY
     Route: 048
     Dates: start: 20040507, end: 20040518
  5. TIENAM [Concomitant]
     Dosage: 2G PER DAY
     Dates: start: 20040518, end: 20040519
  6. IMMUNE GLOBULIN INTRAVENOUS (HUMAN) [Concomitant]
     Dosage: 5G PER DAY
     Route: 042
     Dates: start: 20040518, end: 20040519
  7. LEVOFLOXACIN [Concomitant]
     Dosage: 300MG PER DAY
     Route: 048
     Dates: start: 20040507, end: 20040518
  8. ALBUMIN (HUMAN) [Concomitant]
     Dosage: 100ML PER DAY
     Route: 042
     Dates: start: 20040518, end: 20040518
  9. CYCLOPHOSPHAMIDE [Suspect]
     Indication: STEM CELL TRANSPLANT
     Dosage: 60MGM2 PER DAY
     Dates: start: 20040509, end: 20040510
  10. DIFLUCAN [Concomitant]
     Dosage: 100MG PER DAY
     Route: 048
     Dates: start: 20040507, end: 20040518
  11. VEPESID [Suspect]
     Indication: STEM CELL TRANSPLANT
     Dosage: 500MGK PER DAY
     Route: 042
     Dates: start: 20040509, end: 20040511
  12. ALLOPURINOL [Concomitant]
     Dosage: 200MG PER DAY
     Route: 048
     Dates: start: 20040507, end: 20040512
  13. ZOVIRAX [Concomitant]
     Dosage: 1000MG PER DAY
     Route: 048
     Dates: start: 20040507, end: 20040518
  14. EXACIN [Concomitant]
     Dosage: 400MG PER DAY
     Route: 042
     Dates: start: 20040518, end: 20040519
  15. ALKERAN [Suspect]
     Indication: STEM CELL TRANSPLANT
     Dosage: 130MG PER DAY
     Route: 042
     Dates: start: 20040512, end: 20040512
  16. GRAN [Concomitant]
     Dates: start: 20040518, end: 20040519
  17. KYTRIL [Concomitant]
     Dosage: 3MG PER DAY
     Dates: start: 20040509, end: 20040513
  18. MESNA [Concomitant]
     Dosage: 1600MG PER DAY
     Route: 042
     Dates: start: 20040509, end: 20040510

REACTIONS (4)
  - HYPERTHERMIA [None]
  - BLOOD PRESSURE DECREASED [None]
  - SEPTIC SHOCK [None]
  - BACTERIAL SEPSIS [None]
